FAERS Safety Report 25103469 (Version 1)
Quarter: 2025Q1

REPORT INFORMATION
  Report Type: Report from Study
  Country: US (occurrence: US)
  Receive Date: 20250321
  Receipt Date: 20250321
  Transmission Date: 20250408
  Serious: Yes (Other)
  Sender: DECIPHERA PHARMACEUTICALS
  Company Number: US-DECIPHERA PHARMACEUTICALS LLC-2025US000223

PATIENT
  Age: 64 Year
  Sex: Female

DRUGS (1)
  1. QINLOCK [Suspect]
     Active Substance: RIPRETINIB
     Indication: Gastrointestinal stromal tumour
     Dosage: 1000 MILLIGRAM, QD
     Route: 048
     Dates: start: 20241001

REACTIONS (13)
  - Neuropathy peripheral [Unknown]
  - Blister [Unknown]
  - Bronchitis [Unknown]
  - Hypotension [Unknown]
  - Dizziness [Unknown]
  - Thinking abnormal [Unknown]
  - Weight increased [Unknown]
  - Gait disturbance [Unknown]
  - Exercise tolerance decreased [Unknown]
  - Urinary tract infection [Unknown]
  - Pain in extremity [Unknown]
  - Fatigue [Unknown]
  - Incorrect dosage administered [Unknown]
